FAERS Safety Report 20437954 (Version 1)
Quarter: 2022Q1

REPORT INFORMATION
  Report Type: Spontaneous
  Country: NL (occurrence: NL)
  Receive Date: 20220207
  Receipt Date: 20220207
  Transmission Date: 20220423
  Serious: Yes (Hospitalization, Other)
  Sender: FDA-Public Use
  Company Number: None

PATIENT
  Age: 76 Year
  Sex: Female
  Weight: 63 kg

DRUGS (4)
  1. DOXYCYCLINE [Suspect]
     Active Substance: DOXYCYCLINE
     Indication: Drug provocation test
     Dosage: 110 MG 1DD, UNIT DOSE : 1 DF
     Dates: start: 20220111, end: 20220111
  2. NYSTATIN [Concomitant]
     Active Substance: NYSTATIN
     Dosage: GEL, UNKNOWN , THERAPY START DATE AND END DATE : ASKU , NYSTATINE CREME 100.000E/G / NYSTATINE CREME
  3. MICONAZOL /DAKTARIN [Concomitant]
     Dosage: UNKNOWN , THERAPY START DATE AND END DATE : ASKU
  4. DEXAMETHASONE [Concomitant]
     Active Substance: DEXAMETHASONE
     Dosage: 0,4 MG (MILLIGRAM), THERAPY START DATE AND END DATE : ASKU

REACTIONS (6)
  - Eye swelling [Recovered/Resolved]
  - Dyspnoea [Recovered/Resolved]
  - Swollen tongue [Recovered/Resolved]
  - Angioedema [Recovered/Resolved]
  - Eye pain [Recovered/Resolved]
  - Aphthous ulcer [Recovered/Resolved]

NARRATIVE: CASE EVENT DATE: 20220111
